FAERS Safety Report 8955522 (Version 2)
Quarter: 2013Q3

REPORT INFORMATION
  Report Type: Spontaneous
  Country: DK (occurrence: DK)
  Receive Date: 20121207
  Receipt Date: 20130830
  Transmission Date: 20140515
  Serious: Yes (Disabling)
  Sender: FDA-Public Use
  Company Number: DK-ROCHE-1164425

PATIENT
  Age: 52 Year
  Sex: Female

DRUGS (2)
  1. BONVIVA [Suspect]
     Indication: OSTEOPOROSIS
     Route: 048
     Dates: start: 20101028, end: 201211
  2. ANTABUS [Concomitant]
     Indication: ALCOHOL USE
     Route: 065

REACTIONS (5)
  - Fibula fracture [Unknown]
  - Tibia fracture [Unknown]
  - Pain in extremity [Recovered/Resolved]
  - Periodontitis [Unknown]
  - Tooth extraction [Recovered/Resolved]
